FAERS Safety Report 21978103 (Version 2)
Quarter: 2024Q1

REPORT INFORMATION
  Report Type: Spontaneous
  Country: DE (occurrence: DE)
  Receive Date: 20230210
  Receipt Date: 20240306
  Transmission Date: 20240410
  Serious: Yes (Congenital Anomaly, Other)
  Sender: FDA-Public Use
  Company Number: None

PATIENT
  Sex: Male
  Weight: 2 kg

DRUGS (3)
  1. SERTRALINE [Suspect]
     Active Substance: SERTRALINE HYDROCHLORIDE
     Indication: Product used for unknown indication
     Dosage: 50 [MG/D] FROM 19-AUG-2021 TO 14-APR-2022 FOR 238 DAYS.
     Route: 064
  2. TECFIDERA [Concomitant]
     Active Substance: DIMETHYL FUMARATE
     Indication: Product used for unknown indication
     Dosage: 480 [MG/D (2 X 240 MG/D) ] 2 SEPARATED DOSES
     Route: 064
  3. VITAMIN D [Concomitant]
     Active Substance: VITAMIN D NOS
     Indication: Product used for unknown indication
     Dosage: MOTHER DOSE: 1000 [IE/D] FROM 19-AUG-2021 TO 14-APR-2022 FOR 238 DAYS
     Route: 064

REACTIONS (6)
  - Congenital supraventricular tachycardia [Unknown]
  - Mitral valve incompetence [Recovering/Resolving]
  - Patent ductus arteriosus [Recovered/Resolved]
  - Congenital coronary artery malformation [Unknown]
  - Foetal exposure during pregnancy [Unknown]
  - Atrial septal defect [Not Recovered/Not Resolved]

NARRATIVE: CASE EVENT DATE: 20220401
